FAERS Safety Report 4686417-9 (Version None)
Quarter: 2005Q2

REPORT INFORMATION
  Report Type: 
  Country: None (occurrence: None)
  Receive Date: 20050606
  Receipt Date: 20050523
  Transmission Date: 20051028
  Serious: Yes (Hospitalization)
  Sender: FDA-Public Use
  Company Number: 2005-01124

PATIENT
  Age: 44 Year
  Sex: Female
  Weight: 46 kg

DRUGS (10)
  1. VELCADE [Suspect]
     Indication: MULTIPLE MYELOMA
     Dosage: SEE IMAGE
     Route: 042
     Dates: start: 20050419
  2. VELCADE [Suspect]
     Indication: MULTIPLE MYELOMA
     Dosage: SEE IMAGE
     Route: 042
     Dates: start: 20050510
  3. DOXIL [Suspect]
     Indication: MULTIPLE MYELOMA
     Dosage: 23.00 MG/M2, INTRAVENOUS
     Route: 042
     Dates: start: 20050513
  4. DIPHENHYDRAMINE HCL [Concomitant]
  5. ACETAMINOPHEN [Concomitant]
  6. SALBUTAMOL         (SALBUTAMOL) [Concomitant]
  7. ENALAPRIL MALEATE [Concomitant]
  8. SUCRALFATE [Concomitant]
  9. ALLOPURINOL [Concomitant]
  10. CALCIUM          (CALCIUM) [Concomitant]

REACTIONS (7)
  - BACK PAIN [None]
  - INFECTION [None]
  - INFLUENZA LIKE ILLNESS [None]
  - NEUTROPHIL COUNT DECREASED [None]
  - PYREXIA [None]
  - RENAL FAILURE ACUTE [None]
  - TUMOUR LYSIS SYNDROME [None]
